FAERS Safety Report 7375424-3 (Version None)
Quarter: 2011Q1

REPORT INFORMATION
  Report Type: 
  Country: None (occurrence: None)
  Receive Date: 20110325
  Receipt Date: 20110321
  Transmission Date: 20110831
  Serious: Yes (Death)
  Sender: FDA-Public Use
  Company Number: PHHY2011VE23806

PATIENT
  Sex: Male

DRUGS (7)
  1. TRANGOREX [Concomitant]
     Dosage: 200 MG, UNK
  2. ASCRIPTIN [Concomitant]
  3. PLAVIX [Concomitant]
  4. CO-ASPIRANA [Concomitant]
  5. NITROMAX [Concomitant]
     Dosage: 20 MG, UNK
  6. LIPITOR [Concomitant]
  7. DIOVAN HCT [Suspect]
     Indication: HYPERTENSION
     Dosage: 160/12.5 MG PER DAY

REACTIONS (1)
  - HEPATIC NEOPLASM [None]
